FAERS Safety Report 7867719-1 (Version None)
Quarter: 2011Q4

REPORT INFORMATION
  Report Type: 
  Country: None (occurrence: None)
  Receive Date: 20111028
  Receipt Date: 20111018
  Transmission Date: 20120403
  Serious: Yes (Other)
  Sender: FDA-Public Use
  Company Number: US-PFIZER INC-2011257336

PATIENT
  Sex: Female

DRUGS (1)
  1. EPIPEN [Suspect]
     Indication: ASTHMA
     Dosage: 0.3 MG, UNK
     Dates: start: 20111018

REACTIONS (2)
  - DYSPNOEA [None]
  - DRUG EFFECT DECREASED [None]
